FAERS Safety Report 24020542 (Version 1)
Quarter: 2024Q2

REPORT INFORMATION
  Report Type: Spontaneous
  Country: US (occurrence: None)
  Receive Date: 20240627
  Receipt Date: 20240627
  Transmission Date: 20240716
  Serious: Yes (Other)
  Sender: FDA-Public Use
  Company Number: None

PATIENT
  Age: 76 Year
  Sex: Female
  Weight: 98.88 kg

DRUGS (10)
  1. BACLOFEN [Suspect]
     Active Substance: BACLOFEN
     Indication: Muscle spasms
     Dosage: OTHER QUANTITY : 90 PILLS;?OTHER FREQUENCY : 1-3 X PER DAY;?
     Route: 048
     Dates: start: 20240522, end: 20240602
  2. BACLOFEN [Suspect]
     Active Substance: BACLOFEN
     Indication: Arthralgia
  3. SYNTHROID [Concomitant]
     Active Substance: LEVOTHYROXINE SODIUM
  4. ATORVASTATIN [Concomitant]
  5. CARISOPRODOL [Concomitant]
  6. ZOLPIDEN [Concomitant]
  7. MULTI VITAMIN + MINERALS [Concomitant]
  8. EXTRA VITAMIN C [Concomitant]
  9. CALCIUM CITRATE\VITAMIN D [Concomitant]
     Active Substance: CALCIUM CITRATE\VITAMIN D
  10. IBUPROFEN [Concomitant]

REACTIONS (12)
  - Product substitution issue [None]
  - Dyspepsia [None]
  - Dyspepsia [None]
  - Headache [None]
  - Dizziness [None]
  - Drug ineffective [None]
  - Abdominal discomfort [None]
  - Dizziness [None]
  - Dysstasia [None]
  - Fall [None]
  - Confusional state [None]
  - Incoherent [None]

NARRATIVE: CASE EVENT DATE: 20240602
